FAERS Safety Report 13700922 (Version 2)
Quarter: 2017Q3

REPORT INFORMATION
  Report Type: Spontaneous
  Country: CN (occurrence: CN)
  Receive Date: 20170629
  Receipt Date: 20170713
  Transmission Date: 20171127
  Serious: Yes (Hospitalization)
  Sender: FDA-Public Use
  Company Number: CN-VIIV HEALTHCARE LIMITED-CN2017GSK098367

PATIENT
  Age: 44 Year
  Sex: Male
  Weight: 82.5 kg

DRUGS (2)
  1. HEPTODIN [Suspect]
     Active Substance: LAMIVUDINE
     Dosage: 1 DF, QD
     Route: 048
  2. HEPTODIN [Suspect]
     Active Substance: LAMIVUDINE
     Indication: HEPATITIS B
     Dosage: 100 MG, QD
     Route: 048

REACTIONS (7)
  - Transaminases increased [Recovered/Resolved]
  - Intervertebral disc protrusion [Recovered/Resolved]
  - Product physical issue [Unknown]
  - Nerve compression [Recovered/Resolved]
  - Hepatitis B DNA increased [Recovering/Resolving]
  - Intentional dose omission [Unknown]
  - Nasopharyngitis [Recovered/Resolved]

NARRATIVE: CASE EVENT DATE: 201608
